FAERS Safety Report 8817549 (Version 1)
Quarter: 2012Q4

REPORT INFORMATION
  Report Type: 
  Country: US (occurrence: US)
  Receive Date: 20121004
  Receipt Date: 20121004
  Transmission Date: 20130627
  Serious: Yes (Hospitalization)
  Sender: FDA-Public Use
  Company Number: PHHY2012US085119

PATIENT
  Age: 21 Year
  Sex: Female

DRUGS (7)
  1. CICLOSPORIN [Suspect]
     Indication: IMMUNOSUPPRESSION
     Route: 042
  2. CICLOSPORIN [Suspect]
     Route: 048
  3. EQUINE ANTITHYMOCYTE GLOBULIN [Concomitant]
     Dosage: 15 mg/kg, UNK
  4. TACROLIMUS [Concomitant]
  5. AZATHIOPRINE [Concomitant]
     Dosage: 1-3 mg/kg/day
  6. MYCOPHENOLATE MOFETIL [Concomitant]
     Dosage: 1 g, BID
  7. METHYLPREDNISOLONE [Concomitant]

REACTIONS (6)
  - Lower respiratory tract infection [Not Recovered/Not Resolved]
  - Postoperative wound infection [Not Recovered/Not Resolved]
  - Clostridium difficile colitis [Not Recovered/Not Resolved]
  - Osteomyelitis [Not Recovered/Not Resolved]
  - Mycobacterium abscessus infection [Unknown]
  - Post procedural fistula [Unknown]
